FAERS Safety Report 7633289-6 (Version None)
Quarter: 2011Q3

REPORT INFORMATION
  Report Type: 
  Country: None (occurrence: None)
  Receive Date: 20110718
  Receipt Date: 20110712
  Transmission Date: 20111222
  Serious: Yes (Other)
  Sender: FDA-Public Use
  Company Number: 1000021544

PATIENT
  Age: 54 Year
  Sex: Male

DRUGS (5)
  1. LEVOTHYROXINE SODIUM [Concomitant]
  2. ASPIRIN [Concomitant]
  3. BYSTOLIC [Suspect]
     Dosage: 10 MG (10 MG, 1 IN 1 D), ORAL; 5 MG, ORAL
     Route: 048
     Dates: start: 20101201, end: 20110601
  4. BYSTOLIC [Suspect]
     Dosage: 10 MG (10 MG, 1 IN 1 D), ORAL; 5 MG, ORAL
     Route: 048
     Dates: start: 20110601
  5. CRESTOR [Concomitant]

REACTIONS (8)
  - DIZZINESS [None]
  - CARDIOMYOPATHY [None]
  - MALAISE [None]
  - INSOMNIA [None]
  - WEIGHT INCREASED [None]
  - CHEST PAIN [None]
  - FATIGUE [None]
  - EJECTION FRACTION DECREASED [None]
